FAERS Safety Report 8762691 (Version 10)
Quarter: 2014Q1

REPORT INFORMATION
  Report Type: Report from Study
  Country: CH (occurrence: CH)
  Receive Date: 20120830
  Receipt Date: 20140327
  Transmission Date: 20141002
  Serious: Yes (Hospitalization)
  Sender: FDA-Public Use
  Company Number: CH-ROCHE-1109114

PATIENT
  Age: 86 Year
  Sex: Female
  Weight: 67.4 kg

DRUGS (10)
  1. VISMODEGIB [Suspect]
     Indication: BASAL CELL CARCINOMA
     Dosage: LAST DOSE PRIOR TO SAE 16/AUG/2012
     Route: 048
     Dates: start: 20120705, end: 20120817
  2. ATENOLOL [Concomitant]
     Indication: HYPERTENSION
     Route: 065
     Dates: start: 200001
  3. NORVASC [Concomitant]
     Indication: HYPERTENSION
     Route: 065
     Dates: start: 200001
  4. LEXOTANIL [Concomitant]
     Indication: DEPRESSION
     Route: 065
     Dates: start: 199001
  5. ALLOPUR [Concomitant]
     Indication: GOUT
     Route: 065
     Dates: start: 200001
  6. DAFALGAN [Concomitant]
     Indication: HEADACHE
     Route: 065
     Dates: start: 201205
  7. NACL INFUSION [Concomitant]
     Indication: DEHYDRATION
     Route: 065
     Dates: start: 20120824, end: 20120901
  8. NACL INFUSION [Concomitant]
     Indication: ASTHENIA
  9. HYDROCHLOROTHIAZIDE/VALSARTAN [Concomitant]
     Indication: HYPERTENSION
     Route: 065
     Dates: start: 201101
  10. CARBIMAZOL [Concomitant]
     Indication: HYPOTHYROIDISM
     Route: 065
     Dates: start: 201208

REACTIONS (1)
  - General physical health deterioration [Not Recovered/Not Resolved]
